FAERS Safety Report 4722306-9 (Version None)
Quarter: 2005Q3

REPORT INFORMATION
  Report Type: 
  Country: None (occurrence: None)
  Receive Date: 20050722
  Receipt Date: 20041013
  Transmission Date: 20060218
  Serious: Yes (Hospitalization)
  Sender: FDA-Public Use
  Company Number: US-GLAXOSMITHKLINE-A0530356A

PATIENT
  Age: 65 Year
  Sex: Female

DRUGS (5)
  1. AVANDIA [Suspect]
     Dosage: 4MG PER DAY
     Route: 048
     Dates: start: 20011116, end: 20011101
  2. LOTREL [Concomitant]
     Indication: HYPERTENSION
     Route: 048
     Dates: start: 20010914
  3. LIPITOR [Concomitant]
     Indication: BLOOD CHOLESTEROL INCREASED
     Dosage: 10MG PER DAY
     Route: 048
     Dates: start: 20010914
  4. PREMARIN [Concomitant]
     Indication: DRUG USE FOR UNKNOWN INDICATION
     Dosage: .625MG PER DAY
     Route: 048
  5. PREMARIN [Concomitant]
     Route: 067

REACTIONS (1)
  - HEPATITIS [None]
